FAERS Safety Report 5185656-0 (Version None)
Quarter: 2006Q4

REPORT INFORMATION
  Report Type: 
  Country: None (occurrence: None)
  Receive Date: 20061220
  Receipt Date: 20060817
  Transmission Date: 20070319
  Serious: No
  Sender: FDA-Public Use
  Company Number: US-GLAXOSMITHKLINE-A0617419A

PATIENT
  Age: 42 Year
  Sex: Female

DRUGS (2)
  1. NICODERM CQ [Suspect]
     Dates: start: 20060729, end: 20060811
  2. NICODERM CQ [Suspect]
     Dates: start: 20060812, end: 20060814

REACTIONS (5)
  - APPLICATION SITE RASH [None]
  - APPLICATION SITE REACTION [None]
  - JOINT SWELLING [None]
  - MUSCLE SPASMS [None]
  - PAIN [None]
